FAERS Safety Report 8139502 (Version 3)
Quarter: 2015Q2

REPORT INFORMATION
  Report Type: Report from Study
  Country: US (occurrence: US)
  Receive Date: 20110916
  Receipt Date: 20150429
  Transmission Date: 20150821
  Serious: Yes (Death, Hospitalization, Other)
  Sender: FDA-Public Use
  Company Number: US-ASTELLAS-2011US004393

PATIENT
  Age: 68 Year
  Sex: Male

DRUGS (1)
  1. ERLOTINIB [Suspect]
     Active Substance: ERLOTINIB
     Indication: LUNG NEOPLASM MALIGNANT
     Route: 048
     Dates: start: 20110720

REACTIONS (3)
  - Eye pruritus [Unknown]
  - Pruritus [Unknown]
  - Respiratory failure [Fatal]

NARRATIVE: CASE EVENT DATE: 20110725
